FAERS Safety Report 8235500 (Version 4)
Quarter: 2013Q1

REPORT INFORMATION
  Report Type: Spontaneous
  Country: US (occurrence: US)
  Receive Date: 20111108
  Receipt Date: 20130124
  Transmission Date: 20140127
  Serious: Yes (Hospitalization, Other)
  Sender: FDA-Public Use
  Company Number: US-ELI_LILLY_AND_COMPANY-US201109006534

PATIENT
  Age: 66 None
  Sex: Female
  Weight: 57.4 kg

DRUGS (25)
  1. FORTEO [Suspect]
     Indication: OSTEOPOROSIS
     Dosage: 20 UG, QD
     Route: 058
     Dates: start: 20110626
  2. FORTEO [Suspect]
     Dosage: 20 UG, QD
     Route: 058
     Dates: start: 20110629
  3. STALEVO [Concomitant]
     Dosage: UNK, QD
  4. REQUIP [Concomitant]
     Dosage: UNK, QD
  5. LIPITOR [Concomitant]
     Dosage: UNK, QD
  6. SINEMET [Concomitant]
     Dosage: UNK, QD
  7. CITRICAL [Concomitant]
     Dosage: UNK, QD
  8. FISH OIL [Concomitant]
     Dosage: UNK, QD
  9. METOPROLOL [Concomitant]
     Dosage: UNK, QD
  10. CELEXA [Concomitant]
  11. MVI [Concomitant]
     Dosage: UNK, QD
  12. ASPIRIN [Concomitant]
  13. SIMVASTATIN [Concomitant]
  14. TYLENOL                                 /SCH/ [Concomitant]
  15. SENNA-S                            /01035001/ [Concomitant]
  16. LISINOPRIL [Concomitant]
  17. BACTRIM [Concomitant]
  18. NITROGLYCERIN [Concomitant]
  19. NEURONTIN [Concomitant]
  20. CITRACAL [Concomitant]
     Dosage: 500 MG, QD
  21. AMBIEN [Concomitant]
  22. AMLODIPINE [Concomitant]
     Dosage: UNK
  23. AMANTADINE [Concomitant]
     Dosage: 100 MG, QD
  24. MELATONIN [Concomitant]
     Dosage: 3 MG, EACH EVENING
  25. ATORVASTATIN [Concomitant]
     Dosage: 10 MG, QD

REACTIONS (7)
  - Fall [Recovering/Resolving]
  - Hand fracture [Recovering/Resolving]
  - Clavicle fracture [Recovering/Resolving]
  - Bone fragmentation [Unknown]
  - Deep vein thrombosis [Unknown]
  - Wrist fracture [Unknown]
  - Pain [Unknown]
